APPROVED DRUG PRODUCT: NAPROXEN AND ESOMEPRAZOLE MAGNESIUM
Active Ingredient: ESOMEPRAZOLE MAGNESIUM; NAPROXEN
Strength: EQ 20MG BASE;500MG
Dosage Form/Route: TABLET, DELAYED RELEASE;ORAL
Application: A204920 | Product #002
Applicant: PHARMOBEDIENT CONSULTING LLC
Approved: Jul 20, 2021 | RLD: No | RS: No | Type: DISCN